FAERS Safety Report 5450375-X (Version None)
Quarter: 2007Q3

REPORT INFORMATION
  Report Type: 
  Country: None (occurrence: None)
  Receive Date: 20070912
  Receipt Date: 20070903
  Transmission Date: 20080115
  Serious: Yes (Hospitalization)
  Sender: FDA-Public Use
  Company Number: DE-SHR-DE-2006-007240

PATIENT
  Age: 29 Year
  Sex: Male
  Weight: 98 kg

DRUGS (3)
  1. BETAFERON [Suspect]
     Indication: RELAPSING-REMITTING MULTIPLE SCLEROSIS
     Dosage: UNK, EVERY 2D
     Route: 058
     Dates: start: 20040504, end: 20050803
  2. COPAXONE [Suspect]
     Dosage: 18 MG, 1X/DAY
     Route: 058
     Dates: start: 20051024, end: 20060220
  3. IRBESARTAN [Concomitant]
     Indication: HYPERTENSION
     Dosage: 150 MG, 1X/DAY
     Route: 048
     Dates: start: 20060301

REACTIONS (1)
  - INTERVERTEBRAL DISC PROTRUSION [None]
